FAERS Safety Report 9725642 (Version 1)
Quarter: 2013Q4

REPORT INFORMATION
  Report Type: Spontaneous
  Country: GR (occurrence: GR)
  Receive Date: 20131203
  Receipt Date: 20131203
  Transmission Date: 20140711
  Serious: Yes (Other)
  Sender: FDA-Public Use
  Company Number: GR-ELI_LILLY_AND_COMPANY-GR201311007553

PATIENT
  Age: 76 Year
  Sex: Female

DRUGS (2)
  1. FORSTEO [Suspect]
     Indication: OSTEOPOROSIS
     Dosage: 20 UG, QD
     Route: 058
     Dates: start: 20131104, end: 20131121
  2. APROVEL [Concomitant]
     Indication: HYPERTENSION
     Dosage: 150 MG, QD
     Route: 048

REACTIONS (2)
  - Tachycardia [Recovered/Resolved]
  - Spinal pain [Recovered/Resolved]
